FAERS Safety Report 6547048-9 (Version None)
Quarter: 2010Q1

REPORT INFORMATION
  Report Type: 
  Country: None (occurrence: None)
  Receive Date: 20100122
  Receipt Date: 20100112
  Transmission Date: 20100710
  Serious: Yes (Other)
  Sender: FDA-Public Use
  Company Number: US-PFIZER INC-2009246673

PATIENT
  Sex: Female
  Weight: 79 kg

DRUGS (4)
  1. CELEBREX [Suspect]
     Indication: SPINAL LAMINECTOMY
     Dosage: 200 MG, 2X/DAY
     Route: 048
     Dates: start: 20080818
  2. CELEBREX [Suspect]
     Indication: PAIN
  3. CELEBREX [Suspect]
     Indication: ARTHRITIS
  4. IBUPROFEN [Concomitant]
     Dosage: UNK

REACTIONS (3)
  - DERMATITIS [None]
  - INTERVERTEBRAL DISC PROTRUSION [None]
  - STRESS [None]
